FAERS Safety Report 24258106 (Version 5)
Quarter: 2024Q4

REPORT INFORMATION
  Report Type: Spontaneous
  Country: TR (occurrence: TR)
  Receive Date: 20240828
  Receipt Date: 20241203
  Transmission Date: 20250115
  Serious: No
  Sender: PFIZER
  Company Number: TR-PFIZER INC-202400238747

PATIENT
  Age: 25 Year
  Sex: Male
  Weight: 85 kg

DRUGS (2)
  1. ENBREL [Suspect]
     Active Substance: ETANERCEPT
     Indication: Rheumatoid arthritis
     Dosage: 50 MG, WEEKLY
     Route: 058
     Dates: start: 20240201
  2. METHOTREXATE [Concomitant]
     Active Substance: METHOTREXATE
     Dosage: 1 DF 3 X WEEK

REACTIONS (2)
  - Device mechanical issue [Unknown]
  - Device use error [Unknown]

NARRATIVE: CASE EVENT DATE: 20240710
